FAERS Safety Report 4923701-5 (Version None)
Quarter: 2006Q1

REPORT INFORMATION
  Report Type: 
  Country: None (occurrence: None)
  Receive Date: 20060227
  Receipt Date: 20050426
  Transmission Date: 20060701
  Serious: Yes (Hospitalization)
  Sender: FDA-Public Use
  Company Number: US-MERCK-0504USA04955

PATIENT
  Age: 52 Year
  Sex: Male
  Weight: 78 kg

DRUGS (4)
  1. VIOXX [Suspect]
     Indication: ARTHRITIS
     Route: 048
     Dates: start: 20020601, end: 20021101
  2. VIOXX [Suspect]
     Indication: BACK DISORDER
     Route: 048
     Dates: start: 20020601, end: 20021101
  3. TYLENOL (CAPLET) [Concomitant]
     Route: 065
  4. ADVIL [Concomitant]
     Route: 065

REACTIONS (10)
  - ACUTE MYOCARDIAL INFARCTION [None]
  - ANGINA PECTORIS [None]
  - CORONARY ARTERY DISEASE [None]
  - CORONARY ARTERY RESTENOSIS [None]
  - HYPERCHOLESTEROLAEMIA [None]
  - HYPERLIPIDAEMIA [None]
  - HYPERTENSION [None]
  - HYPOTENSION [None]
  - PLEURAL EFFUSION [None]
  - PNEUMOTHORAX [None]
